FAERS Safety Report 16227984 (Version 1)
Quarter: 2019Q2

REPORT INFORMATION
  Report Type: Spontaneous
  Country: US (occurrence: US)
  Receive Date: 20190320
  Receipt Date: 20190320
  Transmission Date: 20190711
  Serious: No
  Sender: FDA-Public Use
  Company Number: None

PATIENT
  Age: 46 Year
  Sex: Male

DRUGS (2)
  1. HUMIRA [Suspect]
     Active Substance: ADALIMUMAB
  2. SIMPONI [Concomitant]
     Active Substance: GOLIMUMAB
     Dates: start: 20180323, end: 20190205

REACTIONS (1)
  - Drug ineffective [None]

NARRATIVE: CASE EVENT DATE: 20190205
